FAERS Safety Report 9238742 (Version 1)
Quarter: 2013Q1

REPORT INFORMATION
  Report Type: Spontaneous
  Country: US (occurrence: None)
  Receive Date: 20121101
  Receipt Date: 20121101
  Transmission Date: 20140127
  Serious: No
  Sender: FDA-Public Use
  Company Number: 2012MZ000371

PATIENT
  Age: 62 Year
  Sex: Female
  Weight: 55.34 kg

DRUGS (3)
  1. XEOMIN [Suspect]
     Indication: TORTICOLLIS
     Dates: start: 20120823, end: 20120823
  2. ARTANE [Concomitant]
  3. CLONAZEPAM [Concomitant]

REACTIONS (4)
  - Pain [None]
  - Contusion [None]
  - Hyperaesthesia [None]
  - Herpes zoster [None]
